FAERS Safety Report 17348977 (Version 2)
Quarter: 2020Q1

REPORT INFORMATION
  Report Type: Spontaneous
  Country: US (occurrence: US)
  Receive Date: 20200130
  Receipt Date: 20200203
  Transmission Date: 20200409
  Serious: Yes (Other)
  Sender: FDA-Public Use
  Company Number: US-SA-2020SA022221

PATIENT
  Age: 65 Year
  Sex: Female
  Weight: 79 kg

DRUGS (11)
  1. CLONIDINE. [Concomitant]
     Active Substance: CLONIDINE
  2. LANTUS [Concomitant]
     Active Substance: INSULIN GLARGINE
  3. HUMULINE [Concomitant]
  4. ATORVASTATIN [Concomitant]
     Active Substance: ATORVASTATIN
  5. TAXOTERE [Suspect]
     Active Substance: DOCETAXEL
     Dosage: 113 MG, Q3W
     Route: 042
     Dates: start: 20180823, end: 20180823
  6. LEVEMIR [Concomitant]
     Active Substance: INSULIN DETEMIR
     Dosage: UNK
     Dates: start: 20111215
  7. PANTOPRAZOLE [Concomitant]
     Active Substance: PANTOPRAZOLE
  8. CYCLOBENZAPRIN [Concomitant]
     Active Substance: CYCLOBENZAPRINE
  9. FLUTICASONE. [Concomitant]
     Active Substance: FLUTICASONE
  10. TAXOTERE [Suspect]
     Active Substance: DOCETAXEL
     Indication: BREAST CANCER FEMALE
     Dosage: 113 MG, Q3W
     Route: 042
     Dates: start: 20180731, end: 20180731
  11. PARAPLATIN [Concomitant]
     Active Substance: CARBOPLATIN
     Indication: BREAST CANCER FEMALE
     Dosage: 495.5 MG

REACTIONS (2)
  - Psychological trauma [Unknown]
  - Alopecia [Recovering/Resolving]

NARRATIVE: CASE EVENT DATE: 20190228
